FAERS Safety Report 12165484 (Version 7)
Quarter: 2016Q4

REPORT INFORMATION
  Report Type: Spontaneous
  Country: DE (occurrence: DE)
  Receive Date: 20160309
  Receipt Date: 20161014
  Transmission Date: 20170207
  Serious: Yes (Hospitalization, Other)
  Sender: FDA-Public Use
  Company Number: DE-B.I. PHARMACEUTICALS,INC./RIDGEFIELD-2016-BI-14106DE

PATIENT
  Age: 82 Year
  Sex: Female
  Weight: 65 kg

DRUGS (5)
  1. PRADAXA [Suspect]
     Active Substance: DABIGATRAN ETEXILATE MESYLATE
     Route: 065
  2. EUTHYROX [Concomitant]
     Active Substance: LEVOTHYROXINE SODIUM
     Indication: HYPOTHYROIDISM
     Route: 048
  3. METOPROLOL SUCC [Concomitant]
     Active Substance: METOPROLOL SUCCINATE
     Indication: HYPERTENSION
     Route: 048
  4. PROPAFENON [Concomitant]
     Active Substance: PROPAFENONE
     Indication: ATRIAL FIBRILLATION
     Route: 048
  5. PRADAXA [Suspect]
     Active Substance: DABIGATRAN ETEXILATE MESYLATE
     Indication: ATRIAL FIBRILLATION
     Route: 048
     Dates: end: 20160301

REACTIONS (17)
  - Pneumothorax [Unknown]
  - Sacroiliac fracture [Unknown]
  - Lumbar vertebral fracture [Unknown]
  - Nausea [Unknown]
  - Blood pressure decreased [Recovered/Resolved]
  - Retroperitoneal haemorrhage [Recovered/Resolved]
  - Road traffic accident [Unknown]
  - Thrombin time prolonged [Unknown]
  - Coagulation time prolonged [Unknown]
  - Arterial haemorrhage [Recovered/Resolved]
  - Joint dislocation [Unknown]
  - Tachycardia [Unknown]
  - Anaphylactic reaction [Unknown]
  - Retroperitoneal haematoma [Recovered/Resolved]
  - Rib fracture [Unknown]
  - Scapula fracture [Unknown]
  - Haemoglobin decreased [Unknown]

NARRATIVE: CASE EVENT DATE: 20160301
